FAERS Safety Report 16463860 (Version 2)
Quarter: 2019Q3

REPORT INFORMATION
  Report Type: Spontaneous
  Country: GR (occurrence: GR)
  Receive Date: 20190621
  Receipt Date: 20190702
  Transmission Date: 20191004
  Serious: Yes (Other)
  Sender: FDA-Public Use
  Company Number: GR-PFIZER INC-2019260114

PATIENT
  Age: 75 Year
  Sex: Female

DRUGS (2)
  1. LEVETIRACETAM. [Suspect]
     Active Substance: LEVETIRACETAM
     Indication: EPILEPSY
     Dosage: 1000 MG, UNK
  2. LOSARTAN. [Concomitant]
     Active Substance: LOSARTAN
     Dosage: 100 MG, QD (100 MG 1X/DAY)

REACTIONS (6)
  - Atrioventricular block second degree [Unknown]
  - Generalised tonic-clonic seizure [Unknown]
  - Bundle branch block [Unknown]
  - Syncope [Recovered/Resolved]
  - Atrioventricular block first degree [Unknown]
  - Electrocardiogram QT interval abnormal [Unknown]
